FAERS Safety Report 4648272-2 (Version None)
Quarter: 2005Q2

REPORT INFORMATION
  Report Type: 
  Country: None (occurrence: None)
  Receive Date: 20050426
  Receipt Date: 20050414
  Transmission Date: 20051028
  Serious: Yes (Hospitalization, Other)
  Sender: FDA-Public Use
  Company Number: 200511401BCC

PATIENT
  Age: 51 Year
  Sex: Male
  Weight: 83.9154 kg

DRUGS (3)
  1. ASPIRIN [Suspect]
     Indication: PAIN
     Dosage: ORAL
     Route: 048
  2. ASPIRIN [Suspect]
     Indication: ROAD TRAFFIC ACCIDENT
     Dosage: ORAL
     Route: 048
  3. ALKA SELTZER REGULAR FORMULA [Suspect]
     Indication: STOMACH DISCOMFORT
     Dosage: 650 MG TOTAL DAILY
     Dates: start: 20040501

REACTIONS (6)
  - DUODENAL ULCER [None]
  - INFREQUENT BOWEL MOVEMENTS [None]
  - INTESTINAL OBSTRUCTION [None]
  - ORAL INTAKE REDUCED [None]
  - SMALL INTESTINE ULCER [None]
  - STOMACH DISCOMFORT [None]
